FAERS Safety Report 5236362-5 (Version None)
Quarter: 2007Q1

REPORT INFORMATION
  Report Type: 
  Country: None (occurrence: None)
  Receive Date: 20070208
  Receipt Date: 20070124
  Transmission Date: 20070707
  Serious: Yes (Hospitalization)
  Sender: FDA-Public Use
  Company Number: 234181

PATIENT
  Age: 74 Year
  Sex: Male
  Weight: 43 kg

DRUGS (10)
  1. RANIBIZUMAB (RANIBIZUMAB) PWDR + SOLVENT, INJECTION SOLN [Suspect]
     Indication: MACULAR DEGENERATION
     Dosage: 500 AUG, 1/MONTH, INTRAVITREAL
     Dates: start: 20060825
  2. ADALAT [Concomitant]
  3. FAMOTIDINE [Concomitant]
  4. METHYCOBAL (MECOBALAMIN) [Concomitant]
  5. KETOPROFEN [Concomitant]
  6. SODIUM PICOSULFATE (SODIUM PICOSULFATE) [Concomitant]
  7. NOVOLIN (INSULIN HUMAN) [Concomitant]
  8. TENORMIN [Concomitant]
  9. SIGMART (NICORANDIL) [Concomitant]
  10. MEFENAMIC ACID [Concomitant]

REACTIONS (2)
  - ANGINA PECTORIS [None]
  - PALPITATIONS [None]
